FAERS Safety Report 6326284-0 (Version None)
Quarter: 2009Q3

REPORT INFORMATION
  Report Type: 
  Country: None (occurrence: None)
  Receive Date: 20090824
  Receipt Date: 20090820
  Transmission Date: 20100115
  Serious: Yes (Death)
  Sender: FDA-Public Use
  Company Number: US-GENENTECH-288986

PATIENT
  Sex: Male

DRUGS (12)
  1. BEVACIZUMAB [Suspect]
     Indication: GASTRIC CANCER
     Dosage: UNK
  2. IRINOTECAN HCL [Suspect]
     Indication: GASTRIC CANCER
     Dosage: UNK
  3. TAXOTERE [Suspect]
     Indication: GASTRIC CANCER
     Dosage: UNK
  4. EPIRUBICIN [Concomitant]
     Indication: GASTRIC CANCER
     Dosage: UNK
  5. CISPLATIN [Concomitant]
     Indication: GASTRIC CANCER
     Dosage: UNK
  6. CAPECITABINE [Concomitant]
     Indication: GASTRIC CANCER
     Dosage: UNK
  7. ATENOLOL [Concomitant]
     Indication: DRUG USE FOR UNKNOWN INDICATION
     Dosage: 50 MG, UNK
     Dates: start: 20090227
  8. ESOMEPRAZOLE MAGNESIUM [Concomitant]
     Indication: DRUG USE FOR UNKNOWN INDICATION
     Dosage: 50 MG, UNK
     Dates: start: 20090227, end: 20090501
  9. HYDROCHLOROTHIAZIDE [Concomitant]
     Indication: DRUG USE FOR UNKNOWN INDICATION
     Dosage: 12.5 MG, UNK
     Dates: start: 20090306, end: 20090501
  10. LISINOPRIL AND HYDROCHLOROTHIAZIDE [Concomitant]
     Indication: DRUG USE FOR UNKNOWN INDICATION
     Dosage: UNK
     Dates: start: 20090306, end: 20090507
  11. MAGIC MOUTH WASH (INGREDIENTS UNK) [Concomitant]
     Indication: DRUG USE FOR UNKNOWN INDICATION
     Dosage: UNK
     Dates: start: 20090423
  12. SODIUM HYALURONATE [Concomitant]
     Indication: DRUG USE FOR UNKNOWN INDICATION
     Dosage: UNK
     Dates: start: 20090423

REACTIONS (1)
  - DEATH [None]
